FAERS Safety Report 14649836 (Version 1)
Quarter: 2018Q1

REPORT INFORMATION
  Report Type: Spontaneous
  Country: US (occurrence: US)
  Receive Date: 20180316
  Receipt Date: 20180316
  Transmission Date: 20180509
  Serious: Yes (Other)
  Sender: FDA-Public Use
  Company Number: US-BAYER-2018-049001

PATIENT
  Age: 62 Year
  Sex: Female

DRUGS (2)
  1. AFRIN ORIGINAL [Suspect]
     Active Substance: OXYMETAZOLINE HYDROCHLORIDE
     Indication: DYSPNOEA
     Dosage: UNK UNK, PRN DURING 24 HR PERIOD
     Route: 055
  2. AFRIN ORIGINAL [Suspect]
     Active Substance: OXYMETAZOLINE HYDROCHLORIDE
     Indication: DYSPNOEA
     Dosage: UNK
     Route: 055

REACTIONS (6)
  - Drug dependence [None]
  - Product use in unapproved indication [Unknown]
  - Product use issue [Unknown]
  - Drug effect incomplete [Unknown]
  - Product use complaint [None]
  - Pain in extremity [Unknown]

NARRATIVE: CASE EVENT DATE: 20180312
